FAERS Safety Report 18762163 (Version 1)
Quarter: 2021Q1

REPORT INFORMATION
  Report Type: Spontaneous
  Country: US (occurrence: US)
  Receive Date: 20210119
  Receipt Date: 20210119
  Transmission Date: 20210419
  Serious: Yes (Life-Threatening, Hospitalization)
  Sender: FDA-Public Use
  Company Number: None

PATIENT
  Age: 65 Year
  Sex: Male
  Weight: 95 kg

DRUGS (2)
  1. INSULIN (INSULIN, ASPART, HUMAN 100 UNT/ML INJ) [Suspect]
     Active Substance: INSULIN ASPART
     Dosage: ?          OTHER DOSE:20 UNITS;?
     Route: 058
     Dates: start: 20201204, end: 20201216
  2. INSULIN (INSULIN, GLARGINE, HUMAN 100 UNT/ML INJ) [Suspect]
     Active Substance: INSULIN GLARGINE
     Indication: DIABETES MELLITUS
     Dosage: ?          OTHER DOSE:45 UNITS;?
     Route: 058
     Dates: start: 20201025, end: 20201216

REACTIONS (3)
  - Unresponsive to stimuli [None]
  - Hypoglycaemia [None]
  - Mental status changes [None]

NARRATIVE: CASE EVENT DATE: 20201216
